FAERS Safety Report 8852689 (Version 1)
Quarter: 2012Q4

REPORT INFORMATION
  Report Type: 
  Country: US (occurrence: US)
  Receive Date: 20121022
  Receipt Date: 20121022
  Transmission Date: 20130627
  Serious: Yes (Other)
  Sender: FDA-Public Use
  Company Number: PHEH2012US020491

PATIENT
  Sex: Male

DRUGS (2)
  1. EXFORGE [Suspect]
  2. HYDROCHLOROTHIAZIDE [Concomitant]

REACTIONS (1)
  - Cerebrovascular accident [Unknown]
